FAERS Safety Report 9770017 (Version 1)
Quarter: 2013Q4

REPORT INFORMATION
  Report Type: Spontaneous
  Country: US (occurrence: US)
  Receive Date: 20131218
  Receipt Date: 20131218
  Transmission Date: 20140711
  Serious: No
  Sender: FDA-Public Use
  Company Number: US-VERTEX PHARMACEUTICALS INC-AE-2011-000861

PATIENT
  Sex: 0

DRUGS (5)
  1. INCIVEK [Suspect]
     Indication: HEPATITIS C
     Dates: start: 20110803
  2. RIBASPHERE [Concomitant]
     Indication: HEPATITIS C
     Dates: start: 20110803
  3. PEGASYS [Concomitant]
     Indication: HEPATITIS C
     Route: 058
     Dates: start: 20110805
  4. DIVAN HCT [Concomitant]
  5. PRILOSEC [Concomitant]

REACTIONS (6)
  - Dizziness [Not Recovered/Not Resolved]
  - Arthralgia [Recovered/Resolved]
  - Headache [Not Recovered/Not Resolved]
  - Chills [Recovered/Resolved]
  - Cold sweat [Recovered/Resolved]
  - Pyrexia [Recovered/Resolved]
